FAERS Safety Report 8824506 (Version 3)
Quarter: 2012Q4

REPORT INFORMATION
  Report Type: 
  Country: US (occurrence: US)
  Receive Date: 20121004
  Receipt Date: 20121016
  Transmission Date: 20130627
  Serious: No
  Sender: FDA-Public Use
  Company Number: US-PFIZER INC-2012241768

PATIENT
  Age: 5 Year
  Sex: Female

DRUGS (1)
  1. TETRACYCLINE HCL [Suspect]
     Indication: RUBELLA
     Dosage: UNK
     Dates: start: 1959

REACTIONS (1)
  - Tooth discolouration [Not Recovered/Not Resolved]
